FAERS Safety Report 9675681 (Version 1)
Quarter: 2013Q4

REPORT INFORMATION
  Report Type: Spontaneous
  Country: US (occurrence: US)
  Receive Date: 20131107
  Receipt Date: 20131107
  Transmission Date: 20140711
  Serious: Yes (Other)
  Sender: FDA-Public Use
  Company Number: US-AMGEN-USASP2013078321

PATIENT
  Age: 57 Year
  Sex: Male

DRUGS (1)
  1. ENBREL [Suspect]
     Indication: PSORIATIC ARTHROPATHY
     Dosage: 50 MG, QWK
     Route: 065
     Dates: start: 20031025

REACTIONS (4)
  - Prostatic operation [Not Recovered/Not Resolved]
  - Urinary retention [Not Recovered/Not Resolved]
  - Musculoskeletal pain [Recovered/Resolved]
  - Grip strength decreased [Recovered/Resolved]
